FAERS Safety Report 12401311 (Version 1)
Quarter: 2016Q2

REPORT INFORMATION
  Report Type: Spontaneous
  Country: JP (occurrence: JP)
  Receive Date: 20160525
  Receipt Date: 20160525
  Transmission Date: 20160815
  Serious: Yes (Other)
  Sender: FDA-Public Use
  Company Number: JP-JNJFOC-20160519795

PATIENT
  Sex: Male

DRUGS (1)
  1. ZYTIGA [Suspect]
     Active Substance: ABIRATERONE ACETATE
     Indication: PROSTATE CANCER
     Route: 048

REACTIONS (7)
  - Decreased appetite [Unknown]
  - Oedema [Unknown]
  - Infection [Unknown]
  - Hepatic function abnormal [Unknown]
  - Performance status decreased [Unknown]
  - Malaise [Unknown]
  - Hyperglycaemia [Unknown]
